FAERS Safety Report 7906107-6 (Version None)
Quarter: 2011Q4

REPORT INFORMATION
  Report Type: 
  Country: None (occurrence: None)
  Receive Date: 20111109
  Receipt Date: 20111109
  Transmission Date: 20120403
  Serious: Yes (Other)
  Sender: FDA-Public Use
  Company Number: None

PATIENT
  Sex: Female
  Weight: 58.0604 kg

DRUGS (1)
  1. MULTAQ [Suspect]
     Indication: CARDIAC DISORDER
     Dosage: 1 TABLET 2 X DAILY SWALLOW SEVERAL MONTHS
     Route: 048

REACTIONS (2)
  - ONYCHOCLASIS [None]
  - ALOPECIA [None]
